FAERS Safety Report 7462424-8 (Version None)
Quarter: 2011Q2

REPORT INFORMATION
  Report Type: 
  Country: None (occurrence: None)
  Receive Date: 20110506
  Receipt Date: 20110428
  Transmission Date: 20111010
  Serious: Yes (Death, Hospitalization)
  Sender: FDA-Public Use
  Company Number: IT-BRISTOL-MYERS SQUIBB COMPANY-15649205

PATIENT
  Age: 77 Year
  Sex: Male

DRUGS (18)
  1. RATACAND [Concomitant]
     Dosage: 1DF=1 CAPSULE
     Route: 048
  2. SPIRIVA [Concomitant]
     Dosage: 1DF=1 SPRAY
  3. PREDNISONE [Concomitant]
     Dosage: 1DF=1/2 CAPSULE STRENGTH:25MG
  4. ENOXAPARIN SODIUM [Concomitant]
     Dosage: 1DF=1 VIAL CLEXANE 400
  5. OXYGEN [Concomitant]
  6. COUMADIN [Suspect]
     Indication: ATRIAL FIBRILLATION
     Dosage: 5MG ORAL TABS INTERRUPTED ON 28MAR11
     Route: 048
     Dates: start: 20100622
  7. TRIATEC [Concomitant]
     Dosage: 1DF=1 CAPSULE STRENGTH:5MG
     Route: 048
  8. ESOMEPRAZOLE [Concomitant]
     Dosage: 1DF=1 CAPSULE STRENGTH:20MG
  9. TIENAM [Concomitant]
  10. INSULIN [Concomitant]
     Route: 058
  11. LASIX [Concomitant]
     Dosage: 1DF=1 CAPSULE STRENGTH:25MG
     Route: 048
  12. TORVAST [Concomitant]
     Dosage: TORVASTATINA 10MG 1DF=1 CAPSULE
     Route: 048
  13. CARDURA [Concomitant]
     Dosage: 1DF=1 CAPSULE STRENGTH:4MG
     Route: 048
  14. THEOPHYLLINE [Concomitant]
     Dosage: 1DF=1 CAPSULE STRENGTH:300MG
     Route: 048
  15. SERETIDE [Concomitant]
     Dosage: 1DF=1 SPRY
     Route: 055
  16. DILTIAZEM [Concomitant]
     Dosage: 2.5 TABS PER DAY
     Route: 048
  17. EPINITRIL [Concomitant]
     Route: 062
  18. LANOXIN [Concomitant]
     Route: 048

REACTIONS (3)
  - SUBARACHNOID HAEMORRHAGE [None]
  - ACUTE RESPIRATORY FAILURE [None]
  - SUBDURAL HAEMORRHAGE [None]
